FAERS Safety Report 9155468 (Version 1)
Quarter: 2013Q1

REPORT INFORMATION
  Report Type: Report from Study
  Country: AU (occurrence: AU)
  Receive Date: 20130311
  Receipt Date: 20130311
  Transmission Date: 20140127
  Serious: Yes (Other)
  Sender: FDA-Public Use
  Company Number: AU-ROCHE-1143752

PATIENT
  Age: 64 Year
  Sex: Male

DRUGS (4)
  1. ACTEMRA [Suspect]
     Indication: RHEUMATOID ARTHRITIS
     Route: 042
     Dates: start: 20110629
  2. ACTEMRA [Suspect]
     Route: 042
     Dates: start: 20110708
  3. FENTANYL PATCH [Concomitant]
     Indication: RHEUMATOID ARTHRITIS
     Route: 065
     Dates: start: 201210
  4. PANADOL OSTEO [Concomitant]
     Route: 065
     Dates: start: 201210

REACTIONS (6)
  - Hypertension [Not Recovered/Not Resolved]
  - Haematoma [Not Recovered/Not Resolved]
  - Diverticulitis [Unknown]
  - Cardiac arrest [Unknown]
  - Pulmonary embolism [Unknown]
  - Mouth ulceration [Unknown]
